FAERS Safety Report 4745475-3 (Version None)
Quarter: 2005Q3

REPORT INFORMATION
  Report Type: 
  Country: None (occurrence: None)
  Receive Date: 20050811
  Receipt Date: 20050803
  Transmission Date: 20060218
  Serious: Yes (Other)
  Sender: FDA-Public Use
  Company Number: 2005111576

PATIENT
  Age: 51 Year
  Sex: Female
  Weight: 49.4421 kg

DRUGS (4)
  1. NORVASC [Suspect]
     Indication: HYPERTENSION
     Dosage: 20 MG (20 MG, 1 IN 1 D), ORAL
     Route: 048
  2. SYNTHROID [Concomitant]
  3. DEPAKOTE [Concomitant]
  4. PROZAC [Concomitant]

REACTIONS (4)
  - FALL [None]
  - LIMB INJURY [None]
  - PERIARTHRITIS [None]
  - ROTATOR CUFF SYNDROME [None]
